FAERS Safety Report 7381858-3 (Version None)
Quarter: 2011Q1

REPORT INFORMATION
  Report Type: 
  Country: None (occurrence: None)
  Receive Date: 20110329
  Receipt Date: 20110323
  Transmission Date: 20110831
  Serious: Yes (Hospitalization)
  Sender: FDA-Public Use
  Company Number: FR-PFIZER INC-2011064011

PATIENT
  Age: 61 Year
  Sex: Male

DRUGS (2)
  1. ROCEPHIN [Suspect]
     Indication: LYME DISEASE
     Dosage: UNK
     Route: 042
     Dates: start: 20110215, end: 20110305
  2. LYRICA [Suspect]
     Dosage: UNK
     Route: 048
     Dates: start: 20110119, end: 20110303

REACTIONS (2)
  - AGRANULOCYTOSIS [None]
  - PYREXIA [None]
